FAERS Safety Report 10443749 (Version 1)
Quarter: 2014Q3

REPORT INFORMATION
  Report Type: Spontaneous
  Country: US (occurrence: None)
  Receive Date: 20140909
  Receipt Date: 20140909
  Transmission Date: 20150326
  Serious: Yes (Other)
  Sender: FDA-Public Use
  Company Number: None

PATIENT
  Age: 25 Year
  Sex: Female

DRUGS (1)
  1. ESCITALOPRAM 20 MG [Suspect]
     Active Substance: ESCITALOPRAM OXALATE
     Indication: DEPRESSION
     Dosage: 1 TAB DAILY PO 6 MONTHS
     Route: 048

REACTIONS (2)
  - Product substitution issue [None]
  - Dizziness [None]

NARRATIVE: CASE EVENT DATE: 2012
